FAERS Safety Report 8884833 (Version 1)
Quarter: 2012Q4

REPORT INFORMATION
  Report Type: 
  Country: DK (occurrence: FR)
  Receive Date: 20121102
  Receipt Date: 20121102
  Transmission Date: 20130627
  Serious: Yes (Hospitalization)
  Sender: FDA-Public Use
  Company Number: FR-FRI-1000040014

PATIENT
  Age: 61 Year
  Sex: Male

DRUGS (5)
  1. ESCITALOPRAM [Suspect]
     Route: 048
     Dates: end: 20120420
  2. AVASTIN [Suspect]
     Indication: CHEMOTHERAPY
     Dosage: 7.5 mg/kg
     Route: 042
     Dates: start: 20120412, end: 20120412
  3. SKENAN [Suspect]
     Indication: BACK PAIN
     Dosage: 120 mg
     Route: 048
     Dates: start: 20120417
  4. ACTISKENAN [Suspect]
     Indication: BACK PAIN
     Route: 048
     Dates: start: 201204
  5. LEXOMIL [Suspect]
     Route: 048
     Dates: end: 20120420

REACTIONS (3)
  - Confusional state [Recovering/Resolving]
  - Depressed level of consciousness [Recovering/Resolving]
  - Disorientation [Recovering/Resolving]
